FAERS Safety Report 7601257-6 (Version None)
Quarter: 2011Q3

REPORT INFORMATION
  Report Type: 
  Country: None (occurrence: None)
  Receive Date: 20110711
  Receipt Date: 20110628
  Transmission Date: 20111222
  Serious: Yes (Life-Threatening, Hospitalization)
  Sender: FDA-Public Use
  Company Number: JP-JNJFOC-20110612987

PATIENT
  Age: 73 Year
  Sex: Female
  Weight: 49.81 kg

DRUGS (8)
  1. ETANERCEPT [Suspect]
     Route: 050
     Dates: start: 20100419, end: 20110116
  2. PROGRAF [Concomitant]
     Dates: start: 20100628, end: 20101024
  3. SULFASALAZINE [Concomitant]
     Dates: start: 20101206, end: 20110125
  4. BREDININ [Concomitant]
     Dates: start: 20110126, end: 20110516
  5. PREDNISOLONE [Concomitant]
     Dates: start: 20100419
  6. REMICADE [Suspect]
     Indication: PRODUCT USED FOR UNKNOWN INDICATION
     Route: 042
     Dates: start: 20090201
  7. ETANERCEPT [Suspect]
     Indication: RHEUMATOID ARTHRITIS
     Route: 050
     Dates: start: 20110117, end: 20110425
  8. ETANERCEPT [Suspect]
     Route: 050
     Dates: start: 20071001

REACTIONS (1)
  - PANCREATIC CARCINOMA [None]
